FAERS Safety Report 4458140-7 (Version None)
Quarter: 2004Q3

REPORT INFORMATION
  Report Type: 
  Country: None (occurrence: None)
  Receive Date: 20040924
  Receipt Date: 20040916
  Transmission Date: 20050211
  Serious: Yes (Hospitalization)
  Sender: FDA-Public Use
  Company Number: FR-GLAXOSMITHKLINE-B0345611A

PATIENT
  Age: 27 Year
  Sex: Female

DRUGS (9)
  1. CLAMOXYL [Suspect]
     Dosage: 1.5G THREE TIMES PER DAY
     Route: 042
     Dates: start: 20040804, end: 20040818
  2. KETOPROFEN [Suspect]
     Dosage: 1UNIT TWICE PER DAY
     Route: 048
     Dates: start: 20040804, end: 20040824
  3. MOPRAL [Suspect]
     Dosage: 1UNIT TWICE PER DAY
     Route: 048
     Dates: start: 20040804, end: 20040824
  4. CIFLOX 200 [Suspect]
     Dosage: 500MG THREE TIMES PER DAY
     Route: 042
     Dates: start: 20040804, end: 20040824
  5. PERFALGAN [Suspect]
     Dosage: 1G THREE TIMES PER DAY
     Route: 042
     Dates: start: 20040804, end: 20040824
  6. TAZOCILLINE [Suspect]
     Dosage: 4G THREE TIMES PER DAY
     Route: 042
     Dates: start: 20040806, end: 20040824
  7. MYOLASTAN [Concomitant]
     Route: 048
     Dates: start: 20040804, end: 20040806
  8. FUMAFER [Concomitant]
     Route: 048
     Dates: start: 20040804, end: 20040806
  9. VOGALENE [Concomitant]
     Dates: start: 20040804, end: 20040806

REACTIONS (8)
  - ALANINE AMINOTRANSFERASE INCREASED [None]
  - ASPARTATE AMINOTRANSFERASE INCREASED [None]
  - BLOOD LACTATE DEHYDROGENASE INCREASED [None]
  - GAMMA-GLUTAMYLTRANSFERASE INCREASED [None]
  - HEPATITIS CHOLESTATIC [None]
  - INFLUENZA LIKE ILLNESS [None]
  - NEUTROPENIA [None]
  - RASH [None]
